FAERS Safety Report 25827248 (Version 1)
Quarter: 2025Q3

REPORT INFORMATION
  Report Type: Spontaneous
  Country: BR (occurrence: BR)
  Receive Date: 20250920
  Receipt Date: 20250920
  Transmission Date: 20251020
  Serious: Yes (Life-Threatening, Other)
  Sender: NOVARTIS
  Company Number: BR-002147023-NVSC2025BR146439

PATIENT

DRUGS (1)
  1. IMATINIB [Suspect]
     Active Substance: IMATINIB
     Indication: Product used for unknown indication
     Dosage: 400 MG, QD (3 MONTHS)
     Route: 065

REACTIONS (3)
  - Transaminases increased [Unknown]
  - Philadelphia chromosome positive [Unknown]
  - Rash [Unknown]
